FAERS Safety Report 16957790 (Version 2)
Quarter: 2019Q4

REPORT INFORMATION
  Report Type: Spontaneous
  Country: US (occurrence: US)
  Receive Date: 20191024
  Receipt Date: 20191209
  Transmission Date: 20200122
  Serious: No
  Sender: FDA-Public Use
  Company Number: US-SA-2019SA291516

PATIENT
  Age: 70 Year
  Sex: Female

DRUGS (1)
  1. PRALUENT [Suspect]
     Active Substance: ALIROCUMAB
     Indication: TYPE IIA HYPERLIPIDAEMIA
     Dosage: 150 MG, QOW
     Route: 058
     Dates: start: 20190813

REACTIONS (4)
  - Arthralgia [Unknown]
  - Pruritus [Unknown]
  - Musculoskeletal pain [Unknown]
  - Muscular dystrophy [Unknown]

NARRATIVE: CASE EVENT DATE: 2019
